FAERS Safety Report 7806915-6 (Version None)
Quarter: 2011Q4

REPORT INFORMATION
  Report Type: 
  Country: None (occurrence: None)
  Receive Date: 20111011
  Receipt Date: 20111007
  Transmission Date: 20120403
  Serious: Yes (Death)
  Sender: FDA-Public Use
  Company Number: PHHY2011GB88777

PATIENT
  Age: 6 Year
  Sex: Female

DRUGS (1)
  1. CHLORPROMAZINE [Suspect]

REACTIONS (1)
  - NERVOUS SYSTEM DISORDER [None]
